FAERS Safety Report 18560036 (Version 2)
Quarter: 2020Q4

REPORT INFORMATION
  Report Type: Spontaneous
  Country: FR (occurrence: FR)
  Receive Date: 20201130
  Receipt Date: 20201201
  Transmission Date: 20210114
  Serious: Yes (Disabling)
  Sender: FDA-Public Use
  Company Number: FR-JNJFOC-20201137029

PATIENT
  Sex: Male

DRUGS (3)
  1. XEPLION [Suspect]
     Active Substance: PALIPERIDONE PALMITATE
  2. XEPLION [Suspect]
     Active Substance: PALIPERIDONE PALMITATE
     Indication: PRODUCT USED FOR UNKNOWN INDICATION
     Route: 030
  3. XEPLION [Suspect]
     Active Substance: PALIPERIDONE PALMITATE

REACTIONS (10)
  - Disability [Unknown]
  - Lethargy [Unknown]
  - Drug ineffective [Unknown]
  - Anxiety [Unknown]
  - Hypokinesia [Unknown]
  - Blunted affect [Unknown]
  - Speech disorder [Unknown]
  - Sleep disorder [Unknown]
  - Mental disorder [Unknown]
  - Emotional distress [Unknown]
